FAERS Safety Report 13045104 (Version 2)
Quarter: 2017Q1

REPORT INFORMATION
  Report Type: Spontaneous
  Country: US (occurrence: US)
  Receive Date: 20161220
  Receipt Date: 20170218
  Transmission Date: 20170428
  Serious: No
  Sender: FDA-Public Use
  Company Number: PHEH2016US033058

PATIENT
  Sex: Male
  Weight: 89.81 kg

DRUGS (1)
  1. COSENTYX [Suspect]
     Active Substance: SECUKINUMAB
     Indication: PSORIASIS
     Dosage: 300 MG, QMO (Q4 WEEKS)
     Route: 058
     Dates: start: 20150901

REACTIONS (3)
  - Drug ineffective [Unknown]
  - Rash [Unknown]
  - Psoriasis [Unknown]
